FAERS Safety Report 14008021 (Version 6)
Quarter: 2021Q2

REPORT INFORMATION
  Report Type: Spontaneous
  Country: US (occurrence: US)
  Receive Date: 20170925
  Receipt Date: 20210630
  Transmission Date: 20210716
  Serious: No
  Sender: FDA-Public Use
  Company Number: US-VERTEX PHARMACEUTICALS-2017-003646

PATIENT
  Age: 29 Day
  Sex: Female

DRUGS (5)
  1. LEVOFLOXACIN. [Suspect]
     Active Substance: LEVOFLOXACIN
     Indication: PRODUCT USED FOR UNKNOWN INDICATION
     Route: 065
  2. BACTRIM [Concomitant]
     Active Substance: SULFAMETHOXAZOLE\TRIMETHOPRIM
     Dosage: 1 DOSAGE FORM, BID
     Route: 063
     Dates: start: 20161228, end: 20170501
  3. ORKAMBI [Suspect]
     Active Substance: IVACAFTOR\LUMACAFTOR
     Indication: CYSTIC FIBROSIS
     Dosage: 400?250 MG, BID
     Route: 048
     Dates: start: 20150509
  4. SULFAMETHOXAZOLE AND TRIMETHOPRIM [Suspect]
     Active Substance: SULFAMETHOXAZOLE\TRIMETHOPRIM
     Indication: PRODUCT USED FOR UNKNOWN INDICATION
     Route: 065
  5. MEROPENEM. [Concomitant]
     Active Substance: MEROPENEM
     Dosage: 2 G, TID
     Route: 063
     Dates: start: 20161228, end: 20170105

REACTIONS (4)
  - Aspartate aminotransferase increased [Recovered/Resolved]
  - Exposure via breast milk [Unknown]
  - Blood alkaline phosphatase increased [Recovered/Resolved]
  - Blood bilirubin increased [Recovered/Resolved]

NARRATIVE: CASE EVENT DATE: 20170628
